FAERS Safety Report 8180724-3 (Version None)
Quarter: 2012Q1

REPORT INFORMATION
  Report Type: 
  Country: None (occurrence: None)
  Receive Date: 20120221
  Receipt Date: 20120209
  Transmission Date: 20120608
  Serious: Yes (Other)
  Sender: FDA-Public Use
  Company Number: 2012031193

PATIENT
  Age: 61 Year
  Sex: Female
  Weight: 91.6266 kg

DRUGS (20)
  1. PROVIGIL [Concomitant]
  2. MAG OXIDE (MAGNESIUM OXIDE) [Concomitant]
  3. LEVOXYL [Concomitant]
  4. CENTRUM SILVER (CENTRUM SILVER) [Concomitant]
  5. ATENOLOL [Concomitant]
  6. AMOXICILLIN [Concomitant]
  7. GARLIC (ALLIUM SATIVUM) [Concomitant]
  8. ATIVAN [Concomitant]
  9. IBUPROFEN [Concomitant]
  10. ASPIRIN [Concomitant]
  11. ACIDOPHILUS (LACTOBACILLUS ACIDOPHILUS) [Concomitant]
  12. AMLACTIN (AMMONIUM LACTATE) [Concomitant]
  13. COLACE (DOCUSATE SODIUM) [Concomitant]
  14. HIZENTRA [Suspect]
     Indication: IMMUNODEFICIENCY COMMON VARIABLE
     Dosage: (12 G 1X/10 DAYS, 40 GM 20 ML VIAL; 60 ML IN 4-5 SITES OVER 1 HOUR SUBCUTANEOUS)
     Route: 058
  15. MELATONIN (MELATONIN) [Concomitant]
  16. COENZYME Q10 [Concomitant]
  17. CLARITIN [Concomitant]
  18. REQUIP [Concomitant]
  19. FISH OIL (FISH OIL) [Concomitant]
  20. ACYCLOVIR [Concomitant]

REACTIONS (3)
  - TOOTH INFECTION [None]
  - SINUSITIS [None]
  - EAR INFECTION [None]
